FAERS Safety Report 8528459-9 (Version None)
Quarter: 2012Q3

REPORT INFORMATION
  Report Type: 
  Country: None (occurrence: None)
  Receive Date: 20120723
  Receipt Date: 20120711
  Transmission Date: 20120928
  Serious: Yes (Other)
  Sender: FDA-Public Use
  Company Number: FR-AMGEN-FRASP2012025177

PATIENT
  Age: 28 Year
  Sex: Female

DRUGS (6)
  1. ENBREL [Suspect]
     Dosage: UNK
     Route: 058
     Dates: start: 20110901, end: 20111021
  2. METHOTREXATE [Suspect]
     Indication: RHEUMATOID ARTHRITIS
     Dosage: 15 MG, WEEKLY
  3. ENBREL [Suspect]
     Indication: RHEUMATOID ARTHRITIS
     Dosage: UNK
     Route: 058
     Dates: start: 20110901
  4. DIPROSONE [Concomitant]
  5. FOLIC ACID [Concomitant]
     Dosage: TWICE A WEEK
  6. DIPROSONE                          /00008502/ [Concomitant]
     Dosage: UNK

REACTIONS (3)
  - URTICARIA [None]
  - SKIN DISORDER [None]
  - DRUG INEFFECTIVE [None]
